FAERS Safety Report 9012643 (Version 1)
Quarter: 2013Q1

REPORT INFORMATION
  Report Type: Spontaneous
  Country: GB (occurrence: GB)
  Receive Date: 20130114
  Receipt Date: 20130114
  Transmission Date: 20140127
  Serious: Yes (Disabling)
  Sender: FDA-Public Use
  Company Number: PHHY2013GB001988

PATIENT
  Age: 33 Year
  Sex: Female
  Weight: 88 kg

DRUGS (3)
  1. FLUOXETINE [Suspect]
     Dates: start: 20120829
  2. YASMIN [Concomitant]
     Indication: CONTRACEPTION
     Dosage: UNK
     Dates: start: 20120806
  3. GENTAMICIN [Concomitant]
     Dates: start: 20120829, end: 20120908

REACTIONS (1)
  - Psychotic disorder [Recovered/Resolved]
